FAERS Safety Report 6523972-8 (Version None)
Quarter: 2009Q4

REPORT INFORMATION
  Report Type: 
  Country: None (occurrence: None)
  Receive Date: 20091230
  Receipt Date: 20091230
  Transmission Date: 20100525
  Serious: Yes (Death)
  Sender: FDA-Public Use
  Company Number: None

PATIENT
  Age: 80 Year
  Sex: Female
  Weight: 91 kg

DRUGS (1)
  1. WARFARIN SODIUM [Suspect]

REACTIONS (5)
  - ABASIA [None]
  - ASTHENIA [None]
  - INTERNATIONAL NORMALISED RATIO INCREASED [None]
  - SKIN WARM [None]
  - SPEECH DISORDER [None]
